FAERS Safety Report 23392169 (Version 2)
Quarter: 2024Q1

REPORT INFORMATION
  Report Type: Report from Study
  Country: CN (occurrence: CN)
  Receive Date: 20240111
  Receipt Date: 20240126
  Transmission Date: 20240410
  Serious: No
  Sender: FDA-Public Use
  Company Number: CN-PFIZER INC-PV202400003345

PATIENT
  Age: 85 Year
  Sex: Female

DRUGS (28)
  1. NIRMATRELVIR\RITONAVIR [Suspect]
     Active Substance: NIRMATRELVIR\RITONAVIR
     Indication: COVID-19 treatment
     Dosage: [NIRMATRELVIR 300 MG]/[RITONAVIR 100 MG], Q12H
     Dates: start: 20220519, end: 20220520
  2. NIRMATRELVIR\RITONAVIR [Suspect]
     Active Substance: NIRMATRELVIR\RITONAVIR
     Dosage: [NIRMATRELVIR 300 MG]/[RITONAVIR 100 MG], Q12H
     Dates: start: 20220601, end: 20220605
  3. OXYGEN [Concomitant]
     Active Substance: OXYGEN
     Indication: COVID-19
     Dosage: UNK, SUPPLEMENTAL THERAPY
     Route: 055
     Dates: start: 20220519, end: 20220605
  4. VITAMIN C [Concomitant]
     Active Substance: ASCORBIC ACID
     Indication: COVID-19
     Dosage: UNK
     Route: 042
     Dates: start: 20220515
  5. VITAMIN C [Concomitant]
     Active Substance: ASCORBIC ACID
     Dosage: UNK
     Route: 042
     Dates: start: 20220519, end: 20220526
  6. NADROPARIN CALCIUM [Concomitant]
     Active Substance: NADROPARIN CALCIUM
     Indication: COVID-19
     Dosage: UNK
     Route: 058
     Dates: start: 20220519, end: 20220601
  7. METOPROLOL TARTRATE [Concomitant]
     Active Substance: METOPROLOL TARTRATE
     Indication: Cerebral haemorrhage
     Dosage: UNK
     Route: 048
     Dates: start: 20220513, end: 20220608
  8. SITAGLIPTIN PHOSPHATE [Concomitant]
     Active Substance: SITAGLIPTIN PHOSPHATE
     Indication: Diabetes mellitus
     Dosage: UNK
     Route: 048
     Dates: start: 20220513, end: 20220608
  9. OMEPRAZOLE SODIUM [Concomitant]
     Active Substance: OMEPRAZOLE SODIUM
     Indication: Prophylaxis
     Dosage: UNK
     Route: 042
     Dates: start: 20220513, end: 20220608
  10. EPALRESTAT [Concomitant]
     Active Substance: EPALRESTAT
     Indication: Diabetes mellitus
     Dosage: UNK
     Route: 048
     Dates: start: 20220513, end: 20220608
  11. CEFTRIAXONE SODIUM [Concomitant]
     Active Substance: CEFTRIAXONE SODIUM
     Indication: Antiinflammatory therapy
     Dosage: UNK
     Route: 042
     Dates: start: 20220514, end: 20220603
  12. BUDESONIDE [Concomitant]
     Active Substance: BUDESONIDE
     Indication: Bronchiectasis
     Dosage: UNK
     Route: 055
     Dates: start: 20220514, end: 20220603
  13. METHOXYAMINE [Concomitant]
     Active Substance: METHOXYAMINE
     Indication: Cough
     Dosage: UNK, COMPOUND METHOXYNAMINE
     Route: 048
     Dates: start: 20220516, end: 20220608
  14. IVABRADINE HYDROCHLORIDE [Concomitant]
     Active Substance: IVABRADINE HYDROCHLORIDE
     Indication: Cardiac failure
     Dosage: UNK
     Route: 048
     Dates: start: 20220516, end: 20220522
  15. AMLODIPINE BESYLATE [Concomitant]
     Active Substance: AMLODIPINE BESYLATE
     Indication: Hypertension
     Dosage: UNK
     Route: 048
     Dates: start: 20220518, end: 20220601
  16. ACETYLCYSTEINE [Concomitant]
     Active Substance: ACETYLCYSTEINE
     Indication: Productive cough
     Dosage: UNK, SOLUTION
     Route: 055
     Dates: start: 20220518, end: 20220603
  17. DYPHYLLINE [Concomitant]
     Active Substance: DYPHYLLINE
     Indication: Bronchiectasis
     Dosage: UNK
     Route: 042
     Dates: start: 20220518, end: 20220603
  18. DEXAMETHASONE SODIUM PHOSPHATE [Concomitant]
     Active Substance: DEXAMETHASONE PHOSPHATE\DEXAMETHASONE SODIUM PHOSPHATE
     Indication: COVID-19
     Dosage: UNK
     Route: 042
     Dates: start: 20220520, end: 20220524
  19. ENOXAPARIN SODIUM [Concomitant]
     Active Substance: ENOXAPARIN SODIUM
     Indication: COVID-19
     Dosage: UNK
     Route: 058
     Dates: start: 20220520, end: 20220605
  20. MONTELUKAST SODIUM [Concomitant]
     Active Substance: MONTELUKAST SODIUM
     Indication: Bronchiectasis
     Dosage: UNK
     Route: 048
     Dates: start: 20220520, end: 20220603
  21. ACARBOSE [Concomitant]
     Active Substance: ACARBOSE
     Indication: Diabetes mellitus
     Dosage: UNK
     Route: 048
     Dates: start: 20220520, end: 20220608
  22. DILTIAZEM HYDROCHLORIDE [Concomitant]
     Active Substance: DILTIAZEM HYDROCHLORIDE
     Indication: Hypertension
     Dosage: UNK, SUSTAINED RELEASE
     Route: 048
     Dates: start: 20220522, end: 20220603
  23. LEVOFLOXACIN [Concomitant]
     Active Substance: LEVOFLOXACIN
     Indication: Pneumonia
     Dosage: UNK
     Route: 048
     Dates: start: 20220604, end: 20220608
  24. AMBROXOL HYDROCHLORIDE [Concomitant]
     Active Substance: AMBROXOL HYDROCHLORIDE
     Indication: Productive cough
     Dosage: UNK
     Route: 048
     Dates: start: 20220514
  25. SODIUM CHLORIDE [Concomitant]
     Active Substance: SODIUM CHLORIDE
     Indication: COVID-19
     Dosage: UNK
     Route: 048
     Dates: start: 20220514
  26. CALCIUM CHLORIDE\POTASSIUM CHLORIDE\SODIUM CHLORIDE\SODIUM LACTATE [Concomitant]
     Active Substance: CALCIUM CHLORIDE\POTASSIUM CHLORIDE\SODIUM CHLORIDE\SODIUM LACTATE
     Indication: COVID-19
     Dosage: UNK
     Route: 042
     Dates: start: 20220515
  27. INSULIN HUMAN [Concomitant]
     Active Substance: INSULIN HUMAN
     Indication: Diabetes mellitus
     Dosage: UNK
     Route: 058
     Dates: start: 20220520
  28. SODIUM BICARBONATE [Concomitant]
     Active Substance: SODIUM BICARBONATE
     Indication: Bladder irrigation
     Dosage: UNK, ROUTE: PUNCH
     Dates: start: 20220606

REACTIONS (1)
  - Overdose [Unknown]
